FAERS Safety Report 17778694 (Version 2)
Quarter: 2020Q2

REPORT INFORMATION
  Report Type: Spontaneous
  Country: US (occurrence: US)
  Receive Date: 20200513
  Receipt Date: 20200526
  Transmission Date: 20200714
  Serious: No
  Sender: FDA-Public Use
  Company Number: US-VERTEX PHARMACEUTICALS-2020-010431

PATIENT
  Age: 11 Year
  Sex: Male

DRUGS (2)
  1. NUTROPIN [Suspect]
     Active Substance: SOMATROPIN
     Indication: GROWTH DISORDER
     Dosage: 1.3 MG SQ, QHS
     Route: 065
     Dates: start: 20200110
  2. SYMDEKO [Suspect]
     Active Substance: IVACAFTOR\TEZACAFTOR
     Indication: CYSTIC FIBROSIS
     Dosage: 1 TABLET 100MG TEZACAFTOR/150MG IVACAFTOR; 150MG IVACAFTOR , BID
     Route: 048
     Dates: start: 20190923

REACTIONS (1)
  - Irritability [Unknown]

NARRATIVE: CASE EVENT DATE: 202004
